FAERS Safety Report 9559352 (Version 3)
Quarter: 2013Q4

REPORT INFORMATION
  Report Type: Not Available
  Country: US (occurrence: US)
  Receive Date: 20130927
  Receipt Date: 20131205
  Transmission Date: 20140711
  Serious: Yes (Other)
  Sender: FDA-Public Use
  Company Number: US-LUPIN PHARMACEUTICALS INC.-E2B_00000685

PATIENT
  Age: 60 Year
  Sex: Female
  Weight: 54.93 kg

DRUGS (5)
  1. SERTRALINE HYDROCHLORIDE TABLETS 100 MG [Suspect]
     Indication: DEPRESSION
     Dates: start: 200901, end: 201302
  2. XANAX [Concomitant]
     Indication: PRODUCT USED FOR UNKNOWN INDICATION
  3. SOMA [Concomitant]
     Indication: PRODUCT USED FOR UNKNOWN INDICATION
  4. OXYCODONE [Concomitant]
     Indication: PRODUCT USED FOR UNKNOWN INDICATION
  5. FENTANYL [Concomitant]
     Indication: PRODUCT USED FOR UNKNOWN INDICATION
     Route: 061

REACTIONS (7)
  - Intestinal obstruction [Recovered/Resolved]
  - Product substitution issue [Recovered/Resolved]
  - Product solubility abnormal [Not Recovered/Not Resolved]
  - Depression [Recovered/Resolved]
  - Overdose [Recovered/Resolved]
  - Drug ineffective [Recovered/Resolved]
  - Pain [Recovered/Resolved]
